FAERS Safety Report 9341009 (Version 7)
Quarter: 2015Q2

REPORT INFORMATION
  Report Type: Spontaneous
  Country: US (occurrence: US)
  Receive Date: 20130610
  Receipt Date: 20150408
  Transmission Date: 20150821
  Serious: No
  Sender: FDA-Public Use
  Company Number: US-PFIZER INC-2013170274

PATIENT
  Age: 63 Year
  Sex: Female

DRUGS (1)
  1. XELJANZ [Suspect]
     Active Substance: TOFACITINIB CITRATE
     Indication: RHEUMATOID ARTHRITIS
     Dosage: 5 MG, 2X/DAY
     Dates: start: 20130417

REACTIONS (6)
  - Hot flush [Unknown]
  - Vision blurred [Unknown]
  - Alopecia [Recovered/Resolved]
  - Upper respiratory tract infection [Unknown]
  - Muscle spasms [Unknown]
  - Photophobia [Unknown]

NARRATIVE: CASE EVENT DATE: 2013
